FAERS Safety Report 9772779 (Version 1)
Quarter: 2013Q4

REPORT INFORMATION
  Report Type: Spontaneous
  Country: IT (occurrence: IT)
  Receive Date: 20131219
  Receipt Date: 20131219
  Transmission Date: 20140711
  Serious: Yes (Hospitalization)
  Sender: FDA-Public Use
  Company Number: IT-BRISTOL-MYERS SQUIBB COMPANY-19899640

PATIENT
  Age: 71 Year
  Sex: Male

DRUGS (3)
  1. COUMADIN TABS 5 MG [Suspect]
     Dosage: INTER-22MAR13?RESUMED ON UNK DATE
     Route: 048
     Dates: start: 20121015
  2. LANOXIN [Concomitant]
  3. MEPRAL [Concomitant]

REACTIONS (1)
  - Gastric disorder [Recovering/Resolving]
